FAERS Safety Report 25570447 (Version 2)
Quarter: 2025Q3

REPORT INFORMATION
  Report Type: Report from Study
  Country: US (occurrence: US)
  Receive Date: 20250717
  Receipt Date: 20250821
  Transmission Date: 20251020
  Serious: Yes (Hospitalization, Other)
  Sender: ASTELLAS
  Company Number: US-ASTELLAS-2025-AER-015897

PATIENT
  Age: 74 Year
  Sex: Male

DRUGS (1)
  1. ENZALUTAMIDE [Suspect]
     Active Substance: ENZALUTAMIDE
     Indication: Prostate cancer
     Dosage: 80MG X 2
     Route: 048
     Dates: start: 20250310, end: 202506

REACTIONS (7)
  - Muscle spasms [Recovered/Resolved]
  - Fall [Recovered/Resolved]
  - Limb injury [Recovered/Resolved]
  - Face injury [Recovered/Resolved]
  - Contusion [Unknown]
  - Tooth fracture [Unknown]
  - Seizure [Unknown]

NARRATIVE: CASE EVENT DATE: 20250601
